FAERS Safety Report 21742278 (Version 1)
Quarter: 2022Q4

REPORT INFORMATION
  Report Type: Spontaneous
  Country: US (occurrence: None)
  Receive Date: 20221216
  Receipt Date: 20221216
  Transmission Date: 20230113
  Serious: Yes (Hospitalization)
  Sender: FDA-Public Use
  Company Number: None

PATIENT
  Sex: Female

DRUGS (16)
  1. TACROLIMUS [Suspect]
     Active Substance: TACROLIMUS
     Indication: Lung transplant
     Dosage: 1 MG ORAL??TAKE 3 CAPSULES BY MOUTH EVERY 12 HOURS?
     Route: 048
     Dates: start: 20220629
  2. ARIPIPRAZOLE [Concomitant]
  3. BENZONATATE [Concomitant]
  4. EFFEXOR XR [Concomitant]
     Active Substance: VENLAFAXINE HYDROCHLORIDE
  5. FLUOXETINE [Concomitant]
  6. LASIX [Concomitant]
  7. MYCOPHENOLATE [Concomitant]
  8. OFEV [Concomitant]
  9. PREDNISONE [Concomitant]
  10. SIMVASTATIN [Concomitant]
  11. SINGULAIR [Concomitant]
  12. TELMISA/HCTZ [Concomitant]
  13. TESSALON [Concomitant]
  14. TRELEGY AER ELLIPTA [Concomitant]
  15. VENLAFAXINE [Concomitant]
  16. ZOFRAN [Concomitant]

REACTIONS (1)
  - Therapy interrupted [None]
